FAERS Safety Report 14122348 (Version 2)
Quarter: 2018Q1

REPORT INFORMATION
  Report Type: Spontaneous
  Country: US (occurrence: US)
  Receive Date: 20171024
  Receipt Date: 20180123
  Transmission Date: 20180508
  Serious: No
  Sender: FDA-Public Use
  Company Number: US-IMPAX LABORATORIES, INC-2017-IPXL-02935

PATIENT
  Age: 83 Year
  Sex: Female
  Weight: 57 kg

DRUGS (12)
  1. RYTARY [Suspect]
     Active Substance: CARBIDOPA\LEVODOPA
     Dosage: 36.25 MG/145 MG, 3 CAPSULES 3 TIMES A DAY
     Route: 048
     Dates: start: 201710, end: 2017
  2. RYTARY [Suspect]
     Active Substance: CARBIDOPA\LEVODOPA
     Dosage: 48.75MG/195 MG, 5 TIMES DAILY, UNK FOR 2 WEEKS NOW,
     Dates: start: 201710, end: 2017
  3. RYTARY [Suspect]
     Active Substance: CARBIDOPA\LEVODOPA
     Dosage: 23.75/95MG 2 CAPSULES AND 48.75/195MG ONE CAPSULE 4 TIMES A DAY
     Route: 048
     Dates: start: 20171114, end: 201711
  4. SINEMET [Suspect]
     Active Substance: CARBIDOPA\LEVODOPA
     Indication: PARKINSON^S DISEASE
     Dosage: UNK, (REDUCED OR INCREASED THE DOSE)
     Route: 048
  5. SINEMET [Suspect]
     Active Substance: CARBIDOPA\LEVODOPA
     Dosage: 50/200 MG, UNK
     Route: 048
     Dates: start: 201711
  6. MYRBETRIQ [Concomitant]
     Active Substance: MIRABEGRON
     Indication: URINARY INCONTINENCE
     Dosage: 50 MG, UNK
     Route: 065
     Dates: start: 201710
  7. RYTARY [Suspect]
     Active Substance: CARBIDOPA\LEVODOPA
     Dosage: 48.75MG/195MG, 3 CAPSULES 3 TIMES A DAY
     Route: 065
     Dates: start: 20171101, end: 2017
  8. TAMSULOSIN [Concomitant]
     Active Substance: TAMSULOSIN
     Indication: URINARY INCONTINENCE
     Dosage: 0.4 MG, UNK
     Route: 065
     Dates: start: 201710
  9. RYTARY [Suspect]
     Active Substance: CARBIDOPA\LEVODOPA
     Indication: PARKINSON^S DISEASE
     Dosage: OVER 1 YEAR, UNK
     Route: 048
  10. RYTARY [Suspect]
     Active Substance: CARBIDOPA\LEVODOPA
     Dosage: 48.75/195 MG, THREE CAPSULES, THREE TIMES A DAY
     Route: 048
     Dates: start: 20170921, end: 2017
  11. RYTARY [Suspect]
     Active Substance: CARBIDOPA\LEVODOPA
     Dosage: ONE PILL LAST NIGHT, UNK
     Route: 048
     Dates: start: 20171008, end: 2017
  12. SINEMET [Suspect]
     Active Substance: CARBIDOPA\LEVODOPA
     Dosage: 25/100 MG, 1 TABLET AT BED TIME
     Route: 048
     Dates: start: 20171114, end: 201711

REACTIONS (6)
  - Tremor [Not Recovered/Not Resolved]
  - Therapeutic response shortened [Unknown]
  - Adverse event [Not Recovered/Not Resolved]
  - Dyskinesia [Recovered/Resolved]
  - Drooling [Not Recovered/Not Resolved]
  - Intentional product use issue [Unknown]

NARRATIVE: CASE EVENT DATE: 2017
